FAERS Safety Report 5119985-3 (Version None)
Quarter: 2006Q3

REPORT INFORMATION
  Report Type: 
  Country: None (occurrence: None)
  Receive Date: 20060929
  Receipt Date: 20060918
  Transmission Date: 20061208
  Serious: Yes (Disabling)
  Sender: FDA-Public Use
  Company Number: 2006112685

PATIENT
  Sex: Male

DRUGS (11)
  1. SILDENAFIL CITRATE [Suspect]
     Indication: EMPHYSEMA
     Dosage: ORAL
     Route: 048
  2. SILDENAFIL CITRATE [Suspect]
     Indication: LUNG DISORDER
     Dosage: ORAL
     Route: 048
  3. SILDENAFIL CITRATE [Suspect]
     Indication: PULMONARY HYPERTENSION
     Dosage: ORAL
     Route: 048
  4. SPIRIVA [Suspect]
     Indication: EMPHYSEMA
     Dosage: INHALATION
  5. SPIRIVA [Suspect]
     Indication: LUNG DISORDER
     Dosage: INHALATION
  6. SPIRIVA [Suspect]
     Indication: PULMONARY HYPERTENSION
     Dosage: INHALATION
  7. FORASEQ (BUDESONIDE, FORMOTEROL) [Concomitant]
  8. BEROTEC [Concomitant]
  9. PAROXETINE HCL [Concomitant]
  10. DEFLAZACORT (DEFLAZACORT) [Concomitant]
  11. COMBIVENT [Concomitant]

REACTIONS (4)
  - CONDITION AGGRAVATED [None]
  - ECONOMIC PROBLEM [None]
  - IMPAIRED WORK ABILITY [None]
  - LUNG DISORDER [None]
